FAERS Safety Report 15842792 (Version 1)
Quarter: 2018Q4

REPORT INFORMATION
  Report Type: Spontaneous
  Country: US (occurrence: US)
  Receive Date: 20181226
  Receipt Date: 20181226
  Transmission Date: 20190205
  Serious: No
  Sender: FDA-Public Use
  Company Number: None

PATIENT
  Age: 64 Year
  Sex: Male
  Weight: 81.19 kg

DRUGS (3)
  1. AIMOVIG [Suspect]
     Active Substance: ERENUMAB-AOOE
     Indication: MIGRAINE
     Dates: start: 201805
  2. LORAZEPAM. [Concomitant]
     Active Substance: LORAZEPAM
  3. ZOLIPRAN (AMBIEN) [Concomitant]

REACTIONS (1)
  - Dyspnoea [None]
